FAERS Safety Report 9072126 (Version 1)
Quarter: 2013Q1

REPORT INFORMATION
  Report Type: Report from Study
  Country: US (occurrence: US)
  Receive Date: 20130129
  Receipt Date: 20130129
  Transmission Date: 20140127
  Serious: No
  Sender: FDA-Public Use
  Company Number: US-ABBOTT-12P-163-0929575-00

PATIENT
  Age: 35 Year
  Sex: Male

DRUGS (9)
  1. HUMIRA 40 MG/0.8 ML PEN [Suspect]
     Indication: PSORIASIS
     Dosage: LOADING DOSE
     Dates: start: 20120321, end: 20120321
  2. HUMIRA 40 MG/0.8 ML PEN [Suspect]
  3. SERTRALINE [Concomitant]
     Indication: ANXIETY
     Dosage: 50MG DAILY
  4. ATENOLOL [Concomitant]
     Indication: BLOOD PRESSURE
     Dosage: 25MG DAILY
  5. NAPROXEN [Concomitant]
     Indication: HEADACHE
     Dosage: 500MG AS NEEDED
  6. ZOLPIDEM [Concomitant]
     Indication: INSOMNIA
     Dosage: 10MG AS NEEDED
  7. UNKNOWN OVER THE COUNTER MEDICATIONS [Concomitant]
     Indication: HEADACHE
  8. ZANTAC [Concomitant]
     Indication: PRODUCT USED FOR UNKNOWN INDICATION
     Dosage: AS NEEDED
  9. CYCLOSPORINE [Concomitant]
     Indication: PSORIASIS
     Dosage: 1 TAB Q AM AND 2 TABS Q HS

REACTIONS (8)
  - Drug dose omission [Recovering/Resolving]
  - Asthenia [Recovering/Resolving]
  - Rhinorrhoea [Recovering/Resolving]
  - Migraine [Recovering/Resolving]
  - Nausea [Recovering/Resolving]
  - Blister [Recovering/Resolving]
  - Skin infection [Recovering/Resolving]
  - Tinea pedis [Unknown]
